FAERS Safety Report 5948169-1 (Version None)
Quarter: 2008Q4

REPORT INFORMATION
  Report Type: 
  Country: None (occurrence: None)
  Receive Date: 20081107
  Receipt Date: 20081026
  Transmission Date: 20090506
  Serious: Yes (Other)
  Sender: FDA-Public Use
  Company Number: ENTC2008-0352

PATIENT
  Age: 60 Year
  Sex: Male

DRUGS (3)
  1. STALEVO 100 [Suspect]
     Indication: PARKINSON'S DISEASE
     Dosage: 400 MG (100 MG,4 IN 1 D) ORAL : 200 MG (50 MG, 4 IN 1 D) ORAL
     Route: 048
  2. PRAMIPEXOLE DIHYDROCHLORIDE [Concomitant]
  3. AZILECT [Concomitant]

REACTIONS (1)
  - AKATHISIA [None]
